FAERS Safety Report 11118120 (Version 2)
Quarter: 2015Q3

REPORT INFORMATION
  Report Type: Spontaneous
  Country: CN (occurrence: CN)
  Receive Date: 20150518
  Receipt Date: 20150916
  Transmission Date: 20151125
  Serious: Yes (Other)
  Sender: FDA-Public Use
  Company Number: CN-ACCORD-030739

PATIENT
  Age: 39 Year
  Sex: Male

DRUGS (6)
  1. PREDNISOLONE. [Suspect]
     Active Substance: PREDNISOLONE
     Indication: LIVER TRANSPLANT
  2. TACROLIMUS. [Suspect]
     Active Substance: TACROLIMUS
     Indication: LIVER TRANSPLANT REJECTION
     Dosage: ALSO RECEIVED TACROLIMUS 1 MG EVERY 12 HOURS ON 02-DEC-2012.
  3. MYCOPHENOLIC ACID. [Suspect]
     Active Substance: MYCOPHENOLIC ACID
  4. MYCOPHENOLIC ACID. [Suspect]
     Active Substance: MYCOPHENOLIC ACID
     Indication: LIVER TRANSPLANT REJECTION
     Dosage: ALSO RECEIVED MMF 750 MG EVERY 12 H.?MMF DOSE WAS INCREASED TO 1 G EVERY 12 H ON 06-AUG-2013
  5. CICLOSPORIN [Suspect]
     Active Substance: CYCLOSPORINE
     Indication: LIVER TRANSPLANT
  6. TACROLIMUS. [Suspect]
     Active Substance: TACROLIMUS
     Route: 048
     Dates: start: 20121202

REACTIONS (9)
  - Drug-induced liver injury [Recovering/Resolving]
  - Ascites [Unknown]
  - Pyrexia [Recovered/Resolved]
  - Dyslipidaemia [Recovering/Resolving]
  - Hepatic steatosis [Recovering/Resolving]
  - Peritonitis [Unknown]
  - Toxicity to various agents [Unknown]
  - Infection [Unknown]
  - Liver transplant rejection [Recovering/Resolving]
